FAERS Safety Report 9589878 (Version 1)
Quarter: 2013Q4

REPORT INFORMATION
  Report Type: Spontaneous
  Country: US (occurrence: US)
  Receive Date: 20131003
  Receipt Date: 20131003
  Transmission Date: 20140711
  Serious: No
  Sender: FDA-Public Use
  Company Number: US-AMGEN-USASP2012073214

PATIENT
  Age: 57 Year
  Sex: Female

DRUGS (12)
  1. ENBREL [Suspect]
     Indication: PSORIATIC ARTHROPATHY
     Dosage: 50 MG, QWK
     Route: 058
  2. SIMVASTATIN AL [Concomitant]
     Dosage: 10 MG, UNK
     Route: 048
  3. RANITIDINE                         /00550802/ [Concomitant]
     Dosage: 150 MG, UNK
     Route: 048
  4. CLOBETASOL                         /00337102/ [Concomitant]
     Dosage: UNK
  5. GLUCOSAMINE [Concomitant]
     Dosage: 1500 COM
     Route: 048
  6. FISH OIL [Concomitant]
     Dosage: UNK
     Route: 048
  7. ALLERGY                            /00000402/ [Concomitant]
     Dosage: 25 MG, UNK
     Route: 048
  8. CALCIUM D                          /00944201/ [Concomitant]
     Dosage: UNK
  9. MAGNESIUM [Concomitant]
     Dosage: UNK
  10. TURMERIC                           /01079602/ [Concomitant]
     Dosage: UNK
  11. CURCUMIN [Concomitant]
     Dosage: UNK
  12. BIOTENE                            /03475601/ [Concomitant]
     Dosage: UNK

REACTIONS (3)
  - Eyelid oedema [Unknown]
  - Dental care [Unknown]
  - Oral herpes [Unknown]
